FAERS Safety Report 15562880 (Version 1)
Quarter: 2018Q4

REPORT INFORMATION
  Report Type: Spontaneous
  Country: GB (occurrence: GB)
  Receive Date: 20181029
  Receipt Date: 20181029
  Transmission Date: 20190205
  Serious: Yes (Life-Threatening, Hospitalization, Other)
  Sender: FDA-Public Use
  Company Number: PHHY2018GB140776

PATIENT
  Age: 5 Year
  Sex: Female
  Weight: 14 kg

DRUGS (1)
  1. DEFERASIROX. [Suspect]
     Active Substance: DEFERASIROX
     Indication: IRON OVERLOAD
     Dosage: 360 MG, UNK
     Route: 048

REACTIONS (3)
  - Electrolyte imbalance [Unknown]
  - Gastric haemorrhage [Unknown]
  - Haematemesis [Unknown]
